FAERS Safety Report 7690860-3 (Version None)
Quarter: 2011Q3

REPORT INFORMATION
  Report Type: 
  Country: None (occurrence: None)
  Receive Date: 20110818
  Receipt Date: 20110812
  Transmission Date: 20111222
  Serious: Yes (Death, Other)
  Sender: FDA-Public Use
  Company Number: PHHY2011GB72988

PATIENT
  Age: 72 Year
  Sex: Male

DRUGS (3)
  1. ACETYLSALICYLIC ACID SRT [Suspect]
     Indication: ANEURYSM
     Dosage: 75 MG, UNK
  2. HEPARIN [Suspect]
     Indication: THROMBOSIS
     Dosage: 5000 U, UNK
  3. CLOPIDOGREL [Suspect]
     Indication: ANEURYSM
     Dosage: 75 MG, UNK

REACTIONS (5)
  - CONFUSIONAL STATE [None]
  - UNRESPONSIVE TO STIMULI [None]
  - DYSARTHRIA [None]
  - BRAIN STEM HAEMORRHAGE [None]
  - HEADACHE [None]
